FAERS Safety Report 4986977-4 (Version None)
Quarter: 2006Q2

REPORT INFORMATION
  Report Type: 
  Country: None (occurrence: None)
  Receive Date: 20060427
  Receipt Date: 20060427
  Transmission Date: 20061013
  Serious: Yes (Hospitalization)
  Sender: FDA-Public Use
  Company Number: None

PATIENT
  Sex: Female

DRUGS (1)
  1. INDOMETHACIN [Suspect]

REACTIONS (2)
  - ADVERSE DRUG REACTION [None]
  - INTESTINAL PERFORATION [None]
